FAERS Safety Report 24940861 (Version 2)
Quarter: 2025Q1

REPORT INFORMATION
  Report Type: Spontaneous
  Country: FR (occurrence: FR)
  Receive Date: 20250207
  Receipt Date: 20250227
  Transmission Date: 20250409
  Serious: Yes (Death)
  Sender: ROCHE
  Company Number: FR-ROCHE-10000193405

PATIENT
  Age: 49 Year
  Sex: Male

DRUGS (1)
  1. COLUMVI [Suspect]
     Active Substance: GLOFITAMAB-GXBM
     Indication: Diffuse large B-cell lymphoma refractory
     Route: 065

REACTIONS (1)
  - Disease progression [Fatal]
